FAERS Safety Report 4920699-0 (Version None)
Quarter: 2006Q1

REPORT INFORMATION
  Report Type: 
  Country: None (occurrence: None)
  Receive Date: 20060113
  Receipt Date: 20050928
  Transmission Date: 20060701
  Serious: No
  Sender: FDA-Public Use
  Company Number: 2005SP003013

PATIENT
  Age: 48 Year
  Sex: Male
  Weight: 71.2147 kg

DRUGS (1)
  1. LUNESTA [Suspect]
     Indication: INSOMNIA
     Dosage: 1X; ORAL
     Route: 048
     Dates: start: 20050101, end: 20050101

REACTIONS (1)
  - DYSGEUSIA [None]
